FAERS Safety Report 7394821-3 (Version None)
Quarter: 2011Q2

REPORT INFORMATION
  Report Type: 
  Country: None (occurrence: None)
  Receive Date: 20110405
  Receipt Date: 20100929
  Transmission Date: 20111010
  Serious: Yes (Other)
  Sender: FDA-Public Use
  Company Number: A0884147A

PATIENT
  Age: 87 Year
  Sex: Male

DRUGS (13)
  1. ATENOLOL [Concomitant]
     Dosage: 100MG PER DAY
     Route: 048
  2. NORVASC [Concomitant]
     Dosage: 10MG PER DAY
     Route: 048
  3. PRED FORTE [Concomitant]
     Dosage: 1DROP FOUR TIMES PER DAY
     Route: 047
  4. KETOROLAC TROMETHAMINE [Concomitant]
     Dosage: 1DROP TWICE PER DAY
     Route: 047
  5. LISINOPRIL [Concomitant]
     Dosage: 20MG PER DAY
     Route: 048
  6. IMDUR [Concomitant]
     Dosage: 60MG PER DAY
     Route: 048
  7. PROMACTA [Suspect]
     Indication: IDIOPATHIC THROMBOCYTOPENIC PURPURA
     Route: 048
     Dates: start: 20100630
  8. VYTORIN [Concomitant]
     Dosage: 1TAB PER DAY
     Route: 048
  9. DEXAMETHASONE [Concomitant]
     Dosage: 40MG PER DAY
     Route: 048
  10. DOXAZOSIN [Concomitant]
     Dosage: 8MG PER DAY
     Route: 048
  11. CATAPRES [Concomitant]
     Dosage: .3MGD WEEKLY
     Route: 062
  12. LASIX [Concomitant]
     Dosage: 40MG PER DAY
     Route: 048
  13. ZYMAR [Concomitant]
     Dosage: 1DROP FOUR TIMES PER DAY
     Route: 047

REACTIONS (5)
  - CHRONIC OBSTRUCTIVE PULMONARY DISEASE [None]
  - ALANINE AMINOTRANSFERASE INCREASED [None]
  - ASPARTATE AMINOTRANSFERASE INCREASED [None]
  - BRONCHITIS [None]
  - CARDIAC FAILURE CONGESTIVE [None]
